FAERS Safety Report 7209040-0 (Version None)
Quarter: 2010Q4

REPORT INFORMATION
  Report Type: 
  Country: None (occurrence: None)
  Receive Date: 20101222
  Receipt Date: 20101208
  Transmission Date: 20110411
  Serious: Yes (Hospitalization)
  Sender: FDA-Public Use
  Company Number: 2010003140

PATIENT
  Age: 60 Year
  Sex: Male
  Weight: 95 kg

DRUGS (18)
  1. ERLOTINIB/PLACEBO (ERLOTINIB) (TABLET) (ERLOTINIB) [Suspect]
     Indication: HEPATIC NEOPLASM MALIGNANT
     Dosage: (150 MG, QD), ORAL; (100 MG, QD), ORAL; (100 MG,.QD), ORAL; (100 MG, QD), ORAL
     Route: 048
     Dates: start: 20091124, end: 20091207
  2. ERLOTINIB/PLACEBO (ERLOTINIB) (TABLET) (ERLOTINIB) [Suspect]
     Indication: HEPATIC NEOPLASM MALIGNANT
     Dosage: (150 MG, QD), ORAL; (100 MG, QD), ORAL; (100 MG,.QD), ORAL; (100 MG, QD), ORAL
     Route: 048
     Dates: start: 20091215, end: 20100510
  3. ERLOTINIB/PLACEBO (ERLOTINIB) (TABLET) (ERLOTINIB) [Suspect]
     Indication: HEPATIC NEOPLASM MALIGNANT
     Dosage: (150 MG, QD), ORAL; (100 MG, QD), ORAL; (100 MG,.QD), ORAL; (100 MG, QD), ORAL
     Route: 048
     Dates: start: 20100518, end: 20100621
  4. ERLOTINIB/PLACEBO (ERLOTINIB) (TABLET) (ERLOTINIB) [Suspect]
     Indication: HEPATIC NEOPLASM MALIGNANT
     Dosage: (150 MG, QD), ORAL; (100 MG, QD), ORAL; (100 MG,.QD), ORAL; (100 MG, QD), ORAL
     Route: 048
     Dates: start: 20100622
  5. SORAFENIB [Suspect]
     Indication: HEPATIC NEOPLASM MALIGNANT
     Dosage: (800 MG, QD), ORAL; (800 MG, QD), ORAL; (400 MG, QD), ORAL
     Route: 048
     Dates: start: 20091124, end: 20091207
  6. SORAFENIB [Suspect]
     Indication: HEPATIC NEOPLASM MALIGNANT
     Dosage: (800 MG, QD), ORAL; (800 MG, QD), ORAL; (400 MG, QD), ORAL
     Route: 048
     Dates: start: 20091215, end: 20100510
  7. SORAFENIB [Suspect]
     Indication: HEPATIC NEOPLASM MALIGNANT
     Dosage: (800 MG, QD), ORAL; (800 MG, QD), ORAL; (400 MG, QD), ORAL
     Route: 048
     Dates: start: 20100518, end: 20100719
  8. OXYTETRACYCLINE [Concomitant]
  9. FUROSEMIDE [Concomitant]
  10. PERINDOPRIL ERBUMINE [Concomitant]
  11. LERCANIDIPINE [Concomitant]
  12. IBUPROFEN [Concomitant]
  13. ALLANTOIN (ALLANTOIN) [Concomitant]
  14. POTASSIUM CHLORIDE [Concomitant]
  15. BENZYDAMINE HYDROCHLORIDE (BENZYDAMINE HYDROCHLORIDE) [Concomitant]
  16. GASTROGRAFIN [Concomitant]
  17. NIOPAM (IOPAMIDOL) [Concomitant]
  18. GASTROGRAFIN [Concomitant]

REACTIONS (1)
  - ANAEMIA [None]
